FAERS Safety Report 8538172-X (Version None)
Quarter: 2012Q3

REPORT INFORMATION
  Report Type: 
  Country: None (occurrence: None)
  Receive Date: 20120726
  Receipt Date: 20120717
  Transmission Date: 20120928
  Serious: No
  Sender: FDA-Public Use
  Company Number: US-009507513-2012SP031306

PATIENT

DRUGS (3)
  1. REBETOL [Suspect]
     Dosage: 600 MG, BID
     Route: 048
  2. VICTRELIS [Suspect]
     Dosage: 800 MG, TID
     Route: 048
     Dates: start: 20120605, end: 20120612
  3. PEGASYS [Concomitant]
     Dosage: 180 MICROGRAM, QW
     Route: 048

REACTIONS (3)
  - VOMITING [None]
  - FATIGUE [None]
  - WEIGHT DECREASED [None]
